FAERS Safety Report 8070630-7 (Version None)
Quarter: 2012Q1

REPORT INFORMATION
  Report Type: 
  Country: None (occurrence: None)
  Receive Date: 20120125
  Receipt Date: 20120118
  Transmission Date: 20120608
  Serious: Yes (Other)
  Sender: FDA-Public Use
  Company Number: DE-BAXTER-2012BH002187

PATIENT

DRUGS (6)
  1. ADRIAMYCIN PFS [Suspect]
     Indication: SARCOMA
     Route: 042
  2. MESNA [Concomitant]
     Indication: PROPHYLAXIS
     Route: 065
  3. NEULASTA [Concomitant]
     Indication: PROPHYLAXIS
     Route: 058
  4. IFOSFAMIDE [Suspect]
     Indication: SARCOMA
     Route: 042
  5. ETOPOSIDE [Suspect]
     Indication: SARCOMA
     Route: 042
  6. SEROTONIN ANTAGONISTS [Concomitant]
     Indication: PROPHYLAXIS OF NAUSEA AND VOMITING
     Route: 065

REACTIONS (1)
  - HAEMOLYTIC ANAEMIA [None]
